FAERS Safety Report 5636567-5 (Version None)
Quarter: 2008Q1

REPORT INFORMATION
  Report Type: 
  Country: None (occurrence: None)
  Receive Date: 20080225
  Receipt Date: 20080125
  Transmission Date: 20080703
  Serious: No
  Sender: FDA-Public Use
  Company Number: US-BAYER-200812341NA

PATIENT
  Age: 36 Year
  Sex: Male

DRUGS (2)
  1. LEVITRA [Suspect]
     Indication: ERECTILE DYSFUNCTION
     Dosage: AS USED: 20 MG  UNIT DOSE: 20 MG
     Route: 048
     Dates: start: 20071001
  2. ALLERGY MEDICATION (NOS) [Concomitant]

REACTIONS (3)
  - DYSPEPSIA [None]
  - FLUSHING [None]
  - NASAL CONGESTION [None]
